FAERS Safety Report 5889601-1 (Version None)
Quarter: 2008Q3

REPORT INFORMATION
  Report Type: 
  Country: None (occurrence: None)
  Receive Date: 20080919
  Receipt Date: 20080912
  Transmission Date: 20090109
  Serious: Yes (Hospitalization)
  Sender: FDA-Public Use
  Company Number: A0748279A

PATIENT
  Age: 64 Year
  Sex: Male
  Weight: 111.4 kg

DRUGS (8)
  1. AVANDIA [Suspect]
     Dosage: 4MG TWICE PER DAY
     Route: 048
     Dates: start: 20010919, end: 20070520
  2. GLUCOPHAGE [Concomitant]
     Dates: start: 20011005, end: 20031025
  3. METFORMIN HCL [Concomitant]
     Dates: start: 20040102
  4. GLARGINE [Concomitant]
     Dates: start: 20040102
  5. COREG [Concomitant]
     Dates: start: 20040101
  6. LIPITOR [Concomitant]
     Dates: start: 20040101
  7. ZYPREXA [Concomitant]
     Dates: start: 19981201, end: 20040301
  8. SEROQUEL [Concomitant]
     Dates: start: 20040601

REACTIONS (3)
  - CARDIAC DISORDER [None]
  - CEREBROVASCULAR ACCIDENT [None]
  - MYOCARDIAL INFARCTION [None]
